FAERS Safety Report 25192217 (Version 1)
Quarter: 2025Q2

REPORT INFORMATION
  Report Type: Spontaneous
  Country: US (occurrence: None)
  Receive Date: 20250412
  Receipt Date: 20250412
  Transmission Date: 20250717
  Serious: Yes (Hospitalization)
  Sender: FDA-CTU
  Company Number: None

PATIENT
  Sex: Male

DRUGS (4)
  1. VIGABATRIN [Suspect]
     Active Substance: VIGABATRIN
     Indication: Product used for unknown indication
     Dosage: FREQUENCY : TWICE A DAY;?OTHER ROUTE : DISSOLVE;?
     Route: 050
     Dates: start: 202309
  2. MIRALAX POW 3350 NF [Concomitant]
  3. PHENOBARB SOL 20MG/5ML [Concomitant]
  4. VIMPAT TAB 50MG [Concomitant]

REACTIONS (1)
  - Seizure [None]
